FAERS Safety Report 8449341-1 (Version None)
Quarter: 2012Q2

REPORT INFORMATION
  Report Type: 
  Country: None (occurrence: None)
  Receive Date: 20120619
  Receipt Date: 20120612
  Transmission Date: 20120825
  Serious: Yes (Hospitalization, Other)
  Sender: FDA-Public Use
  Company Number: US-PFIZER INC-2012100999

PATIENT
  Sex: Male
  Weight: 60.771 kg

DRUGS (28)
  1. ANDROGEL [Concomitant]
     Dosage: 20.25 MG 11.25 GRAM PER ACTUATION
  2. LANTUS [Concomitant]
     Dosage: 100 UNIT/ML
  3. PROTONIX [Concomitant]
     Dosage: 40 MG, UNK
  4. NITROGLYCERIN [Concomitant]
     Dosage: 0.4 MG, UNK
  5. LANTUS [Concomitant]
     Indication: DIABETES MELLITUS
     Dosage: 20 IU, DAILY
  6. ASTELIN [Concomitant]
     Dosage: 137 MCG (0.1%)
  7. DIAZEPAM [Concomitant]
     Dosage: 10 MG, UNK
  8. FIORICET [Concomitant]
     Dosage: 50 MG-325 MG-40 MG
  9. TRAZODONE HYDROCHLORIDE [Concomitant]
     Dosage: 100 MG, UNK
  10. SELEGILINE HYDROCHLORIDE [Concomitant]
     Dosage: 5 MG, UNK
  11. TRIZIVIR [Concomitant]
     Dosage: 300 MG-150 MG-300 MG
  12. ACYCLOVIR [Concomitant]
     Dosage: 800 MG, UNK
  13. ENALAPRIL MALEATE [Concomitant]
     Indication: HYPERTENSION
     Dosage: 10 MG, 1X/DAY IN AM
  14. LOPID [Concomitant]
     Dosage: 600 MG, UNK
  15. RITALIN [Concomitant]
     Dosage: 5 MG, UNK
  16. SIMVASTATIN [Concomitant]
     Dosage: 20 MG, UNK
  17. WARFARIN SODIUM [Concomitant]
     Dosage: 7.5 MG, UNK
  18. GLUCOTROL [Concomitant]
     Dosage: 5 MG, UNK
  19. PRIMIDONE [Concomitant]
     Dosage: 50 MG, UNK
  20. AMBIEN [Concomitant]
     Dosage: 10 MG, UNK
  21. FENTANYL [Concomitant]
     Dosage: 50 MCG/HR
  22. NEURONTIN [Concomitant]
     Dosage: 600 MG, UNK
  23. VIAGRA [Suspect]
     Indication: ERECTILE DYSFUNCTION
     Dosage: 50 MG, UNK
     Route: 048
     Dates: start: 20110818, end: 20110819
  24. CELEXA [Concomitant]
     Dosage: 20 MG, UNK
  25. MARINOL [Concomitant]
     Dosage: 5 MG, UNK
  26. OXYCODONE HYDROCHLORIDE [Concomitant]
     Dosage: 10 MG, UNK
  27. TOPROL-XL [Concomitant]
     Dosage: 50 MG, UNK
  28. VIRAMUNE [Concomitant]
     Dosage: 200 MG, UNK

REACTIONS (7)
  - OPTIC ISCHAEMIC NEUROPATHY [None]
  - IMPAIRED DRIVING ABILITY [None]
  - DRY EYE [None]
  - BLINDNESS TRANSIENT [None]
  - VISUAL ACUITY REDUCED [None]
  - BLINDNESS [None]
  - CEREBROVASCULAR ACCIDENT [None]
